FAERS Safety Report 10585323 (Version 1)
Quarter: 2014Q4

REPORT INFORMATION
  Report Type: Spontaneous
  Country: FR (occurrence: FR)
  Receive Date: 20141114
  Receipt Date: 20141114
  Transmission Date: 20150529
  Serious: Yes (Hospitalization, Other)
  Sender: FDA-Public Use
  Company Number: FR-ELI_LILLY_AND_COMPANY-FR201411000966

PATIENT
  Age: 67 Year
  Sex: Female

DRUGS (2)
  1. HUMALOG [Suspect]
     Active Substance: INSULIN LISPRO
     Indication: INSULIN-REQUIRING TYPE 2 DIABETES MELLITUS
     Dosage: 3 DF, QD
     Route: 058
  2. HUMALOG [Suspect]
     Active Substance: INSULIN LISPRO
     Dosage: 300 IU, SINGLE
     Route: 058
     Dates: start: 20141018, end: 20141018

REACTIONS (2)
  - Accidental overdose [Recovered/Resolved]
  - Incorrect drug administration rate [Recovered/Resolved]

NARRATIVE: CASE EVENT DATE: 20141018
